FAERS Safety Report 19462603 (Version 2)
Quarter: 2021Q3

REPORT INFORMATION
  Report Type: Spontaneous
  Country: PT (occurrence: PT)
  Receive Date: 20210625
  Receipt Date: 20210709
  Transmission Date: 20211014
  Serious: Yes (Hospitalization)
  Sender: FDA-Public Use
  Company Number: PT-VIFOR (INTERNATIONAL) INC.-VIT-2021-05306

PATIENT
  Age: 76 Year
  Sex: Male
  Weight: 92 kg

DRUGS (12)
  1. TERBINAFINE. [Concomitant]
     Active Substance: TERBINAFINE
     Dosage: 1 TABLET WITH BREAKFAST (WILL TAKE FOR 2 MONTHS FINISHING ON 16/06)
  2. VELTASSA [Suspect]
     Active Substance: PATIROMER
     Indication: HYPERKALAEMIA
     Dosage: 25.2 GRAM, 3 SACHETS ONCE DAILY WITH A SNACK
     Route: 048
     Dates: start: 20210201, end: 20210527
  3. ADENURIC [Concomitant]
     Active Substance: FEBUXOSTAT
  4. VELTASSA [Suspect]
     Active Substance: PATIROMER
     Route: 048
     Dates: start: 20210208
  5. AMIODARONE [Concomitant]
     Active Substance: AMIODARONE
  6. ENTRESTO [Concomitant]
     Active Substance: SACUBITRIL\VALSARTAN
     Dosage: 49/51 MG: 1 TABLET WITH BREAKFAST + 1 TABLET WITH THE EVENING MEAL
  7. SPIRIVA RESPIMAT [Concomitant]
     Active Substance: TIOTROPIUM BROMIDE
     Dosage: 2.5 MICROGRAM/DOSE, 2 PUFFS IN THE MORNING
  8. BISOPROLOL [Concomitant]
     Active Substance: BISOPROLOL
  9. NEORECORMON [Concomitant]
     Active Substance: ERYTHROPOIETIN
  10. EUTIROX [Concomitant]
     Active Substance: LEVOTHYROXINE SODIUM
  11. FOLIC ACID. [Concomitant]
     Active Substance: FOLIC ACID
  12. FUROSEMIDE. [Concomitant]
     Active Substance: FUROSEMIDE
     Route: 048

REACTIONS (1)
  - Metabolic acidosis [Recovering/Resolving]

NARRATIVE: CASE EVENT DATE: 20210527
